FAERS Safety Report 4363022-5 (Version None)
Quarter: 2004Q2

REPORT INFORMATION
  Report Type: 
  Country: None (occurrence: None)
  Receive Date: 20040517
  Receipt Date: 20040517
  Transmission Date: 20050107
  Serious: No
  Sender: FDA-Public Use
  Company Number: S04-USA-01715-01

PATIENT

DRUGS (3)
  1. NAMENDA [Suspect]
     Indication: DYSPHASIA
     Dosage: 5 MG QD PO
     Route: 048
     Dates: start: 20040320, end: 20040326
  2. NAMENDA [Suspect]
     Indication: DYSPHASIA
     Dosage: 10 MG QD PO
     Route: 048
     Dates: start: 20040327
  3. RISPERDAL [Concomitant]

REACTIONS (5)
  - DIZZINESS [None]
  - HEADACHE [None]
  - HOT FLUSH [None]
  - INSOMNIA [None]
  - TREMOR [None]
